FAERS Safety Report 19433916 (Version 1)
Quarter: 2021Q2

REPORT INFORMATION
  Report Type: Spontaneous
  Country: US (occurrence: US)
  Receive Date: 20210617
  Receipt Date: 20210617
  Transmission Date: 20210717
  Serious: No
  Sender: FDA-Public Use
  Company Number: US-ROCHE-2628467

PATIENT
  Sex: Female
  Weight: 77.63 kg

DRUGS (24)
  1. ACTEMRA [Suspect]
     Active Substance: TOCILIZUMAB
     Indication: PRODUCT USED FOR UNKNOWN INDICATION
     Dosage: ONGOING : NO
     Route: 042
     Dates: start: 20200615, end: 20200615
  2. LEVSIN SL [Concomitant]
     Active Substance: HYOSCYAMINE SULFATE
     Indication: DIARRHOEA
     Route: 060
  3. ONDANSETRON [Concomitant]
     Active Substance: ONDANSETRON
     Indication: NAUSEA
     Dosage: 1 TABLET EVERY 6 TO 8 HOURS AS NEEDED
     Route: 048
  4. PROVIGIL [Concomitant]
     Active Substance: MODAFINIL
     Route: 048
  5. CYMBALTA [Concomitant]
     Active Substance: DULOXETINE HYDROCHLORIDE
     Route: 048
  6. ACTEMRA [Suspect]
     Active Substance: TOCILIZUMAB
     Dosage: ONGOING : NO
     Route: 042
     Dates: start: 20200615, end: 20200615
  7. GABAPENTIN. [Concomitant]
     Active Substance: GABAPENTIN
     Route: 048
  8. XANAX [Concomitant]
     Active Substance: ALPRAZOLAM
     Dosage: 1 TABLET TWICE DAILY AND 2 AT BEDTIME AS NEEDED
     Route: 048
  9. CAFFEINE. [Concomitant]
     Active Substance: CAFFEINE
     Dosage: 50?235?40 MG ONE TABLET 4 TIMES A DAY AS NEEDED
     Route: 048
  10. IBUPROFEN. [Concomitant]
     Active Substance: IBUPROFEN
     Dosage: 7.5?200 MG TAKE 1.5 TABLETS 3 TIMES A DAY
     Route: 048
  11. PREDNISONE. [Concomitant]
     Active Substance: PREDNISONE
     Indication: INFLAMMATION
     Dosage: 1 TABLET EVERY 1 TO 2 DAYS
     Route: 048
  12. BENLYSTA [Concomitant]
     Active Substance: BELIMUMAB
     Route: 042
  13. APAP;BUTALBITAL [Concomitant]
     Dosage: 50?235?40 MG ONE TABLET 4 TIMES A DAY AS NEEDED
     Route: 048
  14. PROAIR HFA [Concomitant]
     Active Substance: ALBUTEROL SULFATE
     Dosage: 2 PUFFS EVERY 4 TO 6 HOURS AS NEEDED
     Route: 055
  15. AMLODIPINE BESYLATE. [Concomitant]
     Active Substance: AMLODIPINE BESYLATE
     Route: 048
  16. LEVOTHYROXINE SODIUM. [Concomitant]
     Active Substance: LEVOTHYROXINE SODIUM
     Indication: BASEDOW^S DISEASE
     Route: 048
  17. VALACYCLOVIR [Concomitant]
     Active Substance: VALACYCLOVIR HYDROCHLORIDE
     Indication: ORAL HERPES
     Dosage: 4 TABLETS AS NEEDED
     Route: 048
  18. BUPROPION HCL ER [Concomitant]
     Active Substance: BUPROPION HYDROCHLORIDE
     Route: 048
  19. CIPRO [Concomitant]
     Active Substance: CIPROFLOXACIN HYDROCHLORIDE
     Route: 048
  20. COLACE [Concomitant]
     Active Substance: DOCUSATE SODIUM
     Route: 048
  21. DICLOFENAC SODIUM. [Concomitant]
     Active Substance: DICLOFENAC SODIUM
     Route: 061
  22. HYDROCODONE [Concomitant]
     Active Substance: HYDROCODONE
     Dosage: 7.5?200 MG TAKE 1.5 TABLETS 3 TIMES A DAY
     Route: 048
  23. DICYCLOMINE [Concomitant]
     Active Substance: DICYCLOMINE HYDROCHLORIDE
     Route: 048
  24. HYDROXYCHLOROQUINE SULFATE. [Concomitant]
     Active Substance: HYDROXYCHLOROQUINE SULFATE
     Indication: INFLAMMATION
     Route: 048

REACTIONS (2)
  - No adverse event [Unknown]
  - Wrong product administered [Unknown]
